FAERS Safety Report 6520804-9 (Version None)
Quarter: 2009Q4

REPORT INFORMATION
  Report Type: 
  Country: None (occurrence: None)
  Receive Date: 20091229
  Receipt Date: 20091215
  Transmission Date: 20100525
  Serious: Yes (Death, Other)
  Sender: FDA-Public Use
  Company Number: EG-SANOFI-AVENTIS-2009SA011039

PATIENT
  Age: 59 Year
  Sex: Male

DRUGS (4)
  1. LANTUS [Suspect]
     Indication: TYPE 2 DIABETES MELLITUS
     Route: 058
     Dates: start: 20090429
  2. LANTUS [Suspect]
     Route: 058
     Dates: end: 20091205
  3. INSULIN [Concomitant]
     Dosage: 5 IU/DAY AT BREAKFAST, 7 IU /DAY AT LUNCH, AND 5 IU/DAY AT DINNER
     Route: 058
     Dates: end: 20091205
  4. ALL OTHER THERAPEUTIC PRODUCTS [Concomitant]
     Indication: LIVER DISORDER
     Dates: end: 20091205

REACTIONS (3)
  - DEATH [None]
  - HYPOTENSION [None]
  - INTESTINAL OBSTRUCTION [None]
